FAERS Safety Report 10349548 (Version 1)
Quarter: 2014Q3

REPORT INFORMATION
  Report Type: Spontaneous
  Country: IN (occurrence: IN)
  Receive Date: 20140730
  Receipt Date: 20140730
  Transmission Date: 20150326
  Serious: Yes (Other)
  Sender: FDA-Public Use
  Company Number: IN-SUN PHARMACEUTICAL INDUSTRIES LTD-2014SUN01671

PATIENT
  Age: 61 Year
  Sex: Female

DRUGS (1)
  1. LETROZOLE TABS 2.5MG [Suspect]
     Active Substance: LETROZOLE
     Indication: BREAST CANCER
     Dosage: 2.5 MG, OD AT NIGHT
     Route: 065
     Dates: start: 201309

REACTIONS (1)
  - Drug eruption [Recovered/Resolved]
